FAERS Safety Report 16946723 (Version 3)
Quarter: 2020Q1

REPORT INFORMATION
  Report Type: Spontaneous
  Country: US (occurrence: US)
  Receive Date: 20191022
  Receipt Date: 20200305
  Transmission Date: 20200409
  Serious: Yes (Hospitalization, Other)
  Sender: FDA-Public Use
  Company Number: US-PFIZER INC-2019451830

PATIENT
  Age: 70 Year
  Sex: Female

DRUGS (1)
  1. LYRICA [Suspect]
     Active Substance: PREGABALIN
     Indication: PAIN
     Dosage: 75 MG, 4X/DAY

REACTIONS (9)
  - Pneumonia [Unknown]
  - Pain in extremity [Unknown]
  - Malaise [Unknown]
  - Hypoacusis [Unknown]
  - Hypoxia [Unknown]
  - Back pain [Unknown]
  - Fall [Unknown]
  - Blood pressure abnormal [Unknown]
  - Balance disorder [Unknown]
